FAERS Safety Report 5349656-X (Version None)
Quarter: 2007Q2

REPORT INFORMATION
  Report Type: 
  Country: None (occurrence: None)
  Receive Date: 20070607
  Receipt Date: 20070601
  Transmission Date: 20071010
  Serious: Yes (Hospitalization)
  Sender: FDA-Public Use
  Company Number: BR-ASTRAZENECA-2007UW13544

PATIENT
  Age: 17 Year
  Sex: Female

DRUGS (1)
  1. ATACAND HCT [Suspect]
     Route: 048
     Dates: start: 20070522

REACTIONS (2)
  - HYPOKALAEMIA [None]
  - SUICIDE ATTEMPT [None]
